FAERS Safety Report 4473968-5 (Version None)
Quarter: 2004Q4

REPORT INFORMATION
  Report Type: 
  Country: None (occurrence: None)
  Receive Date: 20041014
  Receipt Date: 20041004
  Transmission Date: 20050328
  Serious: Yes (Hospitalization)
  Sender: FDA-Public Use
  Company Number: CA-JNJFOC-20040706409

PATIENT
  Sex: Male
  Weight: 82.7 kg

DRUGS (6)
  1. REMICADE [Suspect]
     Route: 042
  2. REMICADE [Suspect]
     Route: 042
  3. REMICADE [Suspect]
     Indication: ANKYLOSING SPONDYLITIS
     Route: 042
  4. REMICADE [Suspect]
     Indication: RHEUMATOID ARTHRITIS
     Route: 042
  5. ORUDIS [Suspect]
     Dates: start: 20040801
  6. FERROUS SULFATE TAB [Concomitant]

REACTIONS (16)
  - ACUTE PULMONARY OEDEMA [None]
  - ANAEMIA [None]
  - BLOOD PRESSURE DECREASED [None]
  - CATHETER SITE HAEMORRHAGE [None]
  - CHEST DISCOMFORT [None]
  - CHEST PAIN [None]
  - CONJUNCTIVITIS BACTERIAL [None]
  - DYSPNOEA [None]
  - HYPOKINESIA [None]
  - HYPOPERFUSION [None]
  - MITRAL VALVE STENOSIS [None]
  - MYOCARDIAL ISCHAEMIA [None]
  - OEDEMA PERIPHERAL [None]
  - RENAL FAILURE [None]
  - TRICUSPID VALVE STENOSIS [None]
  - UVEITIS [None]
